FAERS Safety Report 6696306-6 (Version None)
Quarter: 2010Q2

REPORT INFORMATION
  Report Type: 
  Country: None (occurrence: None)
  Receive Date: 20100426
  Receipt Date: 20100413
  Transmission Date: 20101027
  Serious: Yes (Hospitalization)
  Sender: FDA-Public Use
  Company Number: JP-EISAI INC.-E3810-03718-SPO-JP

PATIENT
  Sex: Female
  Weight: 52 kg

DRUGS (5)
  1. PARIET (RABEPRAZOLE) [Suspect]
     Indication: PROPHYLAXIS
     Dosage: UNKNOWN
     Route: 048
  2. VOLTAREN [Suspect]
     Indication: RHEUMATOID ARTHRITIS
     Dosage: UNKNOWN
     Route: 048
     Dates: start: 20100304
  3. RHEUMATREX [Concomitant]
     Route: 048
     Dates: start: 20100305
  4. PREDONINE [Concomitant]
     Indication: RHEUMATOID ARTHRITIS
     Route: 048
  5. STUDY MEDICATION [Concomitant]
     Dates: start: 20100218, end: 20100226

REACTIONS (1)
  - GASTRIC ULCER PERFORATION [None]
